FAERS Safety Report 15315840 (Version 1)
Quarter: 2018Q3

REPORT INFORMATION
  Report Type: Report from Study
  Country: BR (occurrence: BR)
  Receive Date: 20180824
  Receipt Date: 20180824
  Transmission Date: 20181010
  Serious: Yes (Death, Other)
  Sender: FDA-Public Use
  Company Number: PHHY2018BR078304

PATIENT
  Sex: Female
  Weight: 47 kg

DRUGS (1)
  1. DIOVAN AMLO FIX [Suspect]
     Active Substance: AMLODIPINE\VALSARTAN
     Indication: PRODUCT USED FOR UNKNOWN INDICATION
     Dosage: 1 DF, (VALSARTAN 320 MG, AMLODIPINE 5 MG)
     Route: 065

REACTIONS (3)
  - Asthenia [Unknown]
  - Death [Fatal]
  - Neoplasm malignant [Unknown]
